FAERS Safety Report 25169848 (Version 1)
Quarter: 2025Q2

REPORT INFORMATION
  Report Type: Spontaneous
  Country: US (occurrence: US)
  Receive Date: 20250407
  Receipt Date: 20250407
  Transmission Date: 20250716
  Serious: Yes (Hospitalization, Other)
  Sender: PFIZER
  Company Number: US-PFIZER INC-PV202500041142

PATIENT
  Age: 67 Year
  Sex: Female

DRUGS (1)
  1. XELJANZ XR [Suspect]
     Active Substance: TOFACITINIB CITRATE
     Indication: Rheumatoid arthritis
     Dosage: 11MG TABLET BY MOUTH ONCE DAILY
     Route: 048

REACTIONS (4)
  - Pulmonary embolism [Unknown]
  - Thrombosis [Unknown]
  - Hip arthroplasty [Unknown]
  - Blister [Unknown]

NARRATIVE: CASE EVENT DATE: 20180101
